FAERS Safety Report 5763441-6 (Version None)
Quarter: 2008Q2

REPORT INFORMATION
  Report Type: 
  Country: None (occurrence: None)
  Receive Date: 20080604
  Receipt Date: 20080604
  Transmission Date: 20081010
  Serious: Yes (Death, Hospitalization)
  Sender: FDA-Public Use
  Company Number: None

PATIENT
  Sex: Female
  Weight: 63.5036 kg

DRUGS (2)
  1. CLINDESSE [Suspect]
     Indication: FUNGAL INFECTION
     Dosage: 5.8 G  1 VAGINAL
     Route: 067
     Dates: start: 20080516
  2. CLINDESSE [Suspect]
     Indication: VAGINAL INFECTION
     Dosage: 5.8 G  1 VAGINAL
     Route: 067
     Dates: start: 20080516

REACTIONS (6)
  - ABORTION SPONTANEOUS [None]
  - DRUG EXPOSURE DURING PREGNANCY [None]
  - MUSCLE SPASMS [None]
  - THROMBOSIS [None]
  - VAGINAL DISCHARGE [None]
  - VAGINAL HAEMORRHAGE [None]
